FAERS Safety Report 6121794-3 (Version None)
Quarter: 2009Q1

REPORT INFORMATION
  Report Type: 
  Country: None (occurrence: None)
  Receive Date: 20090317
  Receipt Date: 20090309
  Transmission Date: 20090719
  Serious: Yes (Other)
  Sender: FDA-Public Use
  Company Number: BR-JNJCH-2009006686

PATIENT
  Sex: Female

DRUGS (1)
  1. MYLANTA PLUS [Suspect]
     Indication: GASTRITIS
     Dosage: TEXT:UNSPECIFIED
     Route: 048

REACTIONS (6)
  - ABDOMINAL PAIN [None]
  - DIARRHOEA [None]
  - NAUSEA [None]
  - PRODUCT QUALITY ISSUE [None]
  - PRODUCT TAMPERING [None]
  - VOMITING [None]
